FAERS Safety Report 4502150-8 (Version None)
Quarter: 2004Q4

REPORT INFORMATION
  Report Type: 
  Country: None (occurrence: None)
  Receive Date: 20041116
  Receipt Date: 20041105
  Transmission Date: 20050328
  Serious: Yes (Hospitalization)
  Sender: FDA-Public Use
  Company Number: DE-JNJFOC-20041101846

PATIENT
  Age: 84 Year
  Sex: Female

DRUGS (2)
  1. ZALDIAR [Suspect]
     Dosage: 3 TABLETS/DAILY.
     Route: 049
  2. MARCUMAR [Concomitant]
     Indication: MYOCARDIAL INFARCTION
     Route: 065

REACTIONS (2)
  - DEPRESSED LEVEL OF CONSCIOUSNESS [None]
  - HAEMOGLOBIN DECREASED [None]
